FAERS Safety Report 8387252-0 (Version None)
Quarter: 2012Q2

REPORT INFORMATION
  Report Type: 
  Country: None (occurrence: None)
  Receive Date: 20120525
  Receipt Date: 20111101
  Transmission Date: 20120825
  Serious: Yes (Hospitalization)
  Sender: FDA-Public Use
  Company Number: IL-ROCHE-1067272

PATIENT
  Age: 56 Year
  Sex: Male

DRUGS (6)
  1. PEGFILGRASTIM [Concomitant]
     Indication: PROPHYLAXIS
     Dosage: 1 INJECTION PER CHEMOTHERAPY CYCLE
  2. CYCLOPHOSPHAMIDE [Suspect]
     Indication: DIFFUSE LARGE B-CELL LYMPHOMA
     Dosage: 6 CYCLES
  3. PREDNISONE TAB [Suspect]
     Indication: DIFFUSE LARGE B-CELL LYMPHOMA
     Dosage: 6 CYCLES
  4. VINCRISTINE SULFATE [Suspect]
     Indication: DIFFUSE LARGE B-CELL LYMPHOMA
     Dosage: 6 CYCLES
  5. DOXORUBICIN HCL [Suspect]
     Indication: DIFFUSE LARGE B-CELL LYMPHOMA
     Dosage: 6 CYCLES
  6. MABTHERA [Suspect]
     Indication: DIFFUSE LARGE B-CELL LYMPHOMA
     Dosage: 8 CYCLES

REACTIONS (3)
  - ULCER HAEMORRHAGE [None]
  - FEBRILE NEUTROPENIA [None]
  - PNEUMONIA [None]
